FAERS Safety Report 9150574 (Version 1)
Quarter: 2013Q1

REPORT INFORMATION
  Report Type: Spontaneous
  Country: US (occurrence: US)
  Receive Date: 20130308
  Receipt Date: 20130308
  Transmission Date: 20140127
  Serious: Yes (Other)
  Sender: FDA-Public Use
  Company Number: US-PFIZER INC-2013080679

PATIENT
  Age: 68 Year
  Sex: Male

DRUGS (4)
  1. LIPITOR [Suspect]
     Indication: BLOOD CHOLESTEROL ABNORMAL
     Dosage: 20 MG, 1X/DAY
     Route: 048
  2. AMLODIPINE [Concomitant]
     Indication: HYPERTENSION
     Dosage: 10 MG, 1X/DAY
  3. LISINOPRIL [Concomitant]
     Indication: CARDIAC DISORDER
     Dosage: 20 MG, 2X/DAY
  4. ATENOLOL [Concomitant]
     Dosage: 50 MG, 2X/DAY

REACTIONS (2)
  - Type 2 diabetes mellitus [Recovering/Resolving]
  - Intentional drug misuse [Unknown]
